FAERS Safety Report 11150946 (Version 1)
Quarter: 2015Q2

REPORT INFORMATION
  Report Type: Spontaneous
  Country: ID (occurrence: ID)
  Receive Date: 20150601
  Receipt Date: 20150601
  Transmission Date: 20150821
  Serious: Yes (Other)
  Sender: FDA-Public Use
  Company Number: ID-BAYER-2015-275707

PATIENT
  Sex: Female

DRUGS (2)
  1. MIRENA [Suspect]
     Active Substance: LEVONORGESTREL
     Indication: ENDOMETRIOSIS
     Dosage: UNK
     Dates: start: 2011
  2. MIRENA [Suspect]
     Active Substance: LEVONORGESTREL
     Indication: ADENOMYOSIS

REACTIONS (2)
  - Breast mass [None]
  - Uterine leiomyoma [None]

NARRATIVE: CASE EVENT DATE: 201505
